FAERS Safety Report 4759213-1 (Version None)
Quarter: 2005Q3

REPORT INFORMATION
  Report Type: 
  Country: None (occurrence: None)
  Receive Date: 20050831
  Receipt Date: 20050822
  Transmission Date: 20060218
  Serious: Yes (Death, Hospitalization)
  Sender: FDA-Public Use
  Company Number: 2005-08-1514

PATIENT
  Age: 56 Year
  Sex: Female

DRUGS (1)
  1. INTRON A [Suspect]
     Indication: HEPATITIS B
     Dosage: INTRAMUSCULAR
     Route: 030
     Dates: start: 20000101

REACTIONS (15)
  - ALANINE AMINOTRANSFERASE INCREASED [None]
  - AMYLOIDOSIS [None]
  - ANOREXIA [None]
  - ASPARTATE AMINOTRANSFERASE INCREASED [None]
  - BLOOD PRESSURE DECREASED [None]
  - CARDIAC ARREST [None]
  - CARDIAC FAILURE [None]
  - DIARRHOEA [None]
  - GENERAL PHYSICAL HEALTH DETERIORATION [None]
  - GENERALISED OEDEMA [None]
  - HEPATIC FUNCTION ABNORMAL [None]
  - HYPOPROTEINAEMIA [None]
  - LOSS OF CONSCIOUSNESS [None]
  - NEPHROTIC SYNDROME [None]
  - PROTEINURIA [None]
